FAERS Safety Report 9467424 (Version 1)
Quarter: 2013Q3

REPORT INFORMATION
  Report Type: Spontaneous
  Country: US (occurrence: None)
  Receive Date: 20130819
  Receipt Date: 20130819
  Transmission Date: 20140515
  Serious: Yes (Life-Threatening, Hospitalization)
  Sender: FDA-Public Use
  Company Number: None

PATIENT
  Age: 58 Year
  Sex: Male
  Weight: 83.4 kg

DRUGS (1)
  1. PEGASPARAGASE [Suspect]
     Indication: ACUTE LYMPHOCYTIC LEUKAEMIA
     Dosage: 3,795 UNITS  --  INTRAVENOUS
     Route: 042
     Dates: start: 20121030

REACTIONS (8)
  - Wheezing [None]
  - Muscle twitching [None]
  - Convulsion [None]
  - Eye movement disorder [None]
  - Respiratory rate decreased [None]
  - Skin discolouration [None]
  - Heart rate increased [None]
  - Hyperhidrosis [None]
